FAERS Safety Report 16025811 (Version 1)
Quarter: 2019Q1

REPORT INFORMATION
  Report Type: Spontaneous
  Country: IT (occurrence: IT)
  Receive Date: 20190302
  Receipt Date: 20190302
  Transmission Date: 20190418
  Serious: Yes (Other)
  Sender: FDA-Public Use
  Company Number: IT-ACCORD-110074

PATIENT
  Age: 71 Year
  Sex: Male
  Weight: 86 kg

DRUGS (4)
  1. ENALAPRIL/ENALAPRIL MALEATE [Suspect]
     Active Substance: ENALAPRIL MALEATE
     Indication: HYPERTENSION
     Dosage: 20 MG, QD
     Route: 065
  2. METFORMIN [Suspect]
     Active Substance: METFORMIN HYDROCHLORIDE
     Indication: TYPE 2 DIABETES MELLITUS
     Dosage: 1000 MG, BID
     Route: 065
  3. METFORMIN/SITAGLIPTIN [Suspect]
     Active Substance: METFORMIN\SITAGLIPTIN
     Indication: HYPOGLYCAEMIA
     Dosage: 1 DF, QD
     Route: 065
  4. SIMVASTATIN. [Suspect]
     Active Substance: SIMVASTATIN
     Indication: PRODUCT USED FOR UNKNOWN INDICATION
     Dosage: 10 MG, QD
     Route: 065

REACTIONS (6)
  - Weight decreased [Unknown]
  - Non-alcoholic steatohepatitis [Unknown]
  - Hepatic steatosis [Unknown]
  - Hepatic enzyme decreased [Unknown]
  - Hepatomegaly [Unknown]
  - Glycosylated haemoglobin increased [Unknown]
